FAERS Safety Report 17948990 (Version 1)
Quarter: 2020Q2

REPORT INFORMATION
  Report Type: Spontaneous
  Country: US (occurrence: US)
  Receive Date: 20200625
  Receipt Date: 20200625
  Transmission Date: 20200714
  Serious: No
  Sender: FDA-Public Use
  Company Number: US-ROCHE-2474413

PATIENT
  Age: 39 Year
  Sex: Male

DRUGS (3)
  1. CLONAZEPAM. [Suspect]
     Active Substance: CLONAZEPAM
     Indication: STATUS EPILEPTICUS
     Route: 065
  2. FLUPHENAZINE [Suspect]
     Active Substance: FLUPHENAZINE
     Indication: STATUS EPILEPTICUS
     Route: 065
  3. BENZTROPINE [BENZATROPINE] [Suspect]
     Active Substance: BENZTROPINE
     Indication: STATUS EPILEPTICUS
     Route: 065

REACTIONS (3)
  - Hypokinesia [Unknown]
  - Tremor [Unknown]
  - Sedation [Recovered/Resolved]
